FAERS Safety Report 20774270 (Version 1)
Quarter: 2022Q2

REPORT INFORMATION
  Report Type: Spontaneous
  Country: US (occurrence: US)
  Receive Date: 20220502
  Receipt Date: 20220502
  Transmission Date: 20220721
  Serious: No
  Sender: FDA-Public Use
  Company Number: US-PFIZER INC-2021873168

PATIENT
  Age: 58 Year
  Sex: Female
  Weight: 58.97 kg

DRUGS (1)
  1. TESTOSTERONE [Suspect]
     Active Substance: TESTOSTERONE
     Dosage: UNK

REACTIONS (6)
  - Blood testosterone increased [Unknown]
  - Off label use [Unknown]
  - Product use issue [Unknown]
  - Tachycardia [Recovered/Resolved]
  - Heart valve incompetence [Recovered/Resolved]
  - Reflux laryngitis [Unknown]

NARRATIVE: CASE EVENT DATE: 20210501
